FAERS Safety Report 10076261 (Version 2)
Quarter: 2014Q2

REPORT INFORMATION
  Report Type: Spontaneous
  Country: JP (occurrence: JP)
  Receive Date: 20140414
  Receipt Date: 20140414
  Transmission Date: 20141212
  Serious: Yes (Death, Hospitalization)
  Sender: FDA-Public Use
  Company Number: JP-BAXTER-2014BAX015565

PATIENT
  Sex: Male

DRUGS (1)
  1. DIANEAL-N PD-4 2.5 PD SOLUTION [Suspect]
     Indication: DIABETIC NEPHROPATHY
     Route: 033
     Dates: start: 201004, end: 20140327

REACTIONS (3)
  - Cardiac failure [Fatal]
  - Diabetic nephropathy [Unknown]
  - Condition aggravated [Unknown]
